FAERS Safety Report 18393931 (Version 3)
Quarter: 2021Q1

REPORT INFORMATION
  Report Type: Spontaneous
  Country: US (occurrence: US)
  Receive Date: 20201016
  Receipt Date: 20210114
  Transmission Date: 20210419
  Serious: No
  Sender: FDA-Public Use
  Company Number: US-ASTRAZENECA-2020SF33652

PATIENT
  Sex: Female

DRUGS (5)
  1. CALQUENCE [Suspect]
     Active Substance: ACALABRUTINIB
     Indication: CHRONIC LYMPHOCYTIC LEUKAEMIA
     Dosage: DAILY
     Route: 048
  2. CALQUENCE [Suspect]
     Active Substance: ACALABRUTINIB
     Indication: CHRONIC LYMPHOCYTIC LEUKAEMIA
     Dosage: TWO TIMES A DAY
     Route: 048
     Dates: start: 20201001
  3. RITUXIMAB. [Concomitant]
     Active Substance: RITUXIMAB
  4. ZOFRAN [Concomitant]
     Active Substance: ONDANSETRON HYDROCHLORIDE
  5. BENADRYL [Concomitant]
     Active Substance: DIPHENHYDRAMINE HYDROCHLORIDE

REACTIONS (16)
  - Muscle tightness [Unknown]
  - Insomnia [Recovering/Resolving]
  - Chills [Recovered/Resolved]
  - Anxiety [Unknown]
  - Constipation [Recovering/Resolving]
  - Heart rate increased [Unknown]
  - Palpitations [Recovered/Resolved]
  - Pyrexia [Recovered/Resolved]
  - Flatulence [Recovering/Resolving]
  - Abdominal pain upper [Recovered/Resolved]
  - Back pain [Recovered/Resolved]
  - Pain in extremity [Unknown]
  - Muscular weakness [Unknown]
  - Chest pain [Recovered/Resolved]
  - Arthralgia [Unknown]
  - Gait disturbance [Recovering/Resolving]
